FAERS Safety Report 9164736 (Version 3)
Quarter: 2013Q2

REPORT INFORMATION
  Report Type: Spontaneous
  Country: US (occurrence: US)
  Receive Date: 20130315
  Receipt Date: 20130613
  Transmission Date: 20140414
  Serious: Yes (Hospitalization)
  Sender: FDA-Public Use
  Company Number: US-PFIZER INC-2013084440

PATIENT
  Age: 83 Year
  Sex: Female

DRUGS (8)
  1. XALKORI [Suspect]
     Indication: LUNG NEOPLASM MALIGNANT
     Dosage: 250 MG, 2X/DAY
     Route: 048
     Dates: start: 20130131, end: 20130312
  2. XALKORI [Suspect]
     Dosage: 250 MG, 2X/DAY
     Route: 048
     Dates: start: 201303
  3. PLAVIX [Concomitant]
     Dosage: 75 MG, UNK
  4. KEPPRA [Concomitant]
     Indication: CONVULSION
     Dosage: 500 MG, 2X/DAY
     Dates: start: 201302
  5. SYNTHROID [Concomitant]
     Dosage: 100 UG, UNK
  6. NEXIUM [Concomitant]
     Dosage: 40, UNK
  7. ASA [Concomitant]
     Dosage: 81, UNK
  8. DECADRON [Concomitant]
     Dosage: 4 MG, UNK

REACTIONS (4)
  - Pulmonary embolism [Recovered/Resolved with Sequelae]
  - Thrombosis [Unknown]
  - Local swelling [Unknown]
  - Gastrooesophageal reflux disease [Unknown]
